FAERS Safety Report 26192136 (Version 1)
Quarter: 2025Q4

REPORT INFORMATION
  Report Type: Spontaneous
  Country: JP (occurrence: JP)
  Receive Date: 20251223
  Receipt Date: 20251223
  Transmission Date: 20260118
  Serious: Yes (Hospitalization)
  Sender: PFIZER
  Company Number: JP-PFIZER INC-202500245674

PATIENT

DRUGS (1)
  1. MYCOBUTIN [Suspect]
     Active Substance: RIFABUTIN
     Dosage: UNK

REACTIONS (1)
  - Condition aggravated [Unknown]
